FAERS Safety Report 7540793-8 (Version None)
Quarter: 2011Q2

REPORT INFORMATION
  Report Type: 
  Country: None (occurrence: None)
  Receive Date: 20110603
  Receipt Date: 20110520
  Transmission Date: 20111010
  Serious: Yes (Hospitalization)
  Sender: FDA-Public Use
  Company Number: IDA-00549

PATIENT
  Age: 26 Year
  Sex: Male

DRUGS (6)
  1. AMIODARONE HCL [Concomitant]
  2. DEPAKENE [Concomitant]
  3. CLEXANE (ENOXAPARIN SODIUM) [Concomitant]
  4. CLINDAMYCIN [Concomitant]
  5. PROPRANOLOL [Suspect]
     Indication: CONGESTIVE CARDIOMYOPATHY
     Dosage: 1 MG/ML INJECTION, 5 MG EVERY DAY
     Route: 041
     Dates: start: 20110103, end: 20110105
  6. TAZOCEL (PIPERACILLIN, TAZOBACTAM) [Concomitant]

REACTIONS (5)
  - COAGULOPATHY [None]
  - SHOCK HAEMORRHAGIC [None]
  - ACUTE HEPATIC FAILURE [None]
  - LOW CARDIAC OUTPUT SYNDROME [None]
  - PERICARDIAL HAEMORRHAGE [None]
